FAERS Safety Report 19991956 (Version 1)
Quarter: 2021Q4

REPORT INFORMATION
  Report Type: Spontaneous
  Country: US (occurrence: US)
  Receive Date: 20211025
  Receipt Date: 20211025
  Transmission Date: 20220303
  Serious: Yes (Other)
  Sender: FDA-Public Use
  Company Number: US-HIKMA PHARMACEUTICALS-US-H14001-21-04552

PATIENT
  Age: 27 Year
  Sex: Female

DRUGS (4)
  1. HYDROMORPHONE [Suspect]
     Active Substance: HYDROMORPHONE
     Indication: Pain management
     Dosage: UNKNOWN
     Route: 048
  2. HYDROMORPHONE [Suspect]
     Active Substance: HYDROMORPHONE
     Indication: Pain management
     Dosage: UNKNOWN
     Route: 042
  3. KETAMINE [Suspect]
     Active Substance: KETAMINE
     Indication: Pain management
     Dosage: UNKNOWN
     Route: 042
  4. FENTANYL [Suspect]
     Active Substance: FENTANYL
     Indication: Pain management
     Dosage: UNKNOWN
     Route: 065

REACTIONS (2)
  - Drug intolerance [Unknown]
  - Nervous system disorder [Unknown]
